FAERS Safety Report 9999180 (Version 3)
Quarter: 2014Q2

REPORT INFORMATION
  Report Type: Spontaneous
  Country: US (occurrence: US)
  Receive Date: 20140312
  Receipt Date: 20140425
  Transmission Date: 20141212
  Serious: Yes (Disabling)
  Sender: FDA-Public Use
  Company Number: US-009507513-1403USA004173

PATIENT
  Age: 30 Year
  Sex: Female
  Weight: 83.45 kg

DRUGS (4)
  1. IMPLANON [Suspect]
     Indication: CONTRACEPTION
     Dosage: SINGLE ROD, 68 MG
     Route: 059
     Dates: start: 20130731
  2. IMPLANON [Suspect]
     Dosage: SINGLE ROD, 68 MG
     Route: 059
     Dates: end: 20130729
  3. PRENATE [Concomitant]
     Indication: VITAMIN SUPPLEMENTATION
     Dosage: DOSE-1/500 MG, DAILY
     Route: 048
     Dates: start: 20140303
  4. ZOFRAN [Concomitant]
     Indication: NAUSEA
     Dosage: 4 MG,IN Q8H PRN
     Route: 048
     Dates: start: 20140303

REACTIONS (4)
  - Unintended pregnancy [Unknown]
  - Medical device complication [Unknown]
  - Device difficult to use [Unknown]
  - Device difficult to use [Unknown]
